FAERS Safety Report 6416066-3 (Version None)
Quarter: 2009Q4

REPORT INFORMATION
  Report Type: 
  Country: None (occurrence: None)
  Receive Date: 20091027
  Receipt Date: 20091014
  Transmission Date: 20100525
  Serious: Yes (Other)
  Sender: FDA-Public Use
  Company Number: HU-ELI_LILLY_AND_COMPANY-HU200910004427

PATIENT
  Age: 32 Year
  Sex: Male

DRUGS (2)
  1. ZYPREXA [Suspect]
     Dosage: UNK, UNKNOWN
     Route: 065
  2. RISPERIDONE [Concomitant]
     Dosage: UNK, UNKNOWN
     Route: 065

REACTIONS (9)
  - BLOOD CREATININE INCREASED [None]
  - COMA [None]
  - DELIRIUM [None]
  - DRUG TOXICITY [None]
  - DYSPNOEA [None]
  - HYPOGLYCAEMIA [None]
  - LEUKOCYTOSIS [None]
  - PYREXIA [None]
  - SUICIDAL IDEATION [None]
